FAERS Safety Report 20708162 (Version 1)
Quarter: 2022Q2

REPORT INFORMATION
  Report Type: Spontaneous
  Country: US (occurrence: US)
  Receive Date: 20220414
  Receipt Date: 20220414
  Transmission Date: 20220720
  Serious: Yes (Hospitalization)
  Sender: FDA-Public Use
  Company Number: US-BRISTOL-MYERS SQUIBB COMPANY-2022-017692

PATIENT
  Age: 80 Year
  Sex: Male

DRUGS (1)
  1. POMALYST [Suspect]
     Active Substance: POMALIDOMIDE
     Dosage: 1 IN 2 DAYS FOR 3 WEEKS AND THEN 1 WEEK OFF.
     Route: 048
     Dates: start: 20210909

REACTIONS (3)
  - Dyspnoea [Unknown]
  - Pain [Unknown]
  - Drug ineffective [Unknown]
